FAERS Safety Report 6469132-0 (Version None)
Quarter: 2009Q4

REPORT INFORMATION
  Report Type: 
  Country: None (occurrence: None)
  Receive Date: 20091202
  Receipt Date: 20091202
  Transmission Date: 20100525
  Serious: Yes (Hospitalization)
  Sender: FDA-Public Use
  Company Number: None

PATIENT
  Age: 54 Year
  Sex: Male
  Weight: 134.8 kg

DRUGS (2)
  1. SIMVASTATIN [Suspect]
     Indication: HYPERLIPIDAEMIA
     Dosage: 40 MG AT BEDTIME PO
     Route: 048
     Dates: start: 20040423, end: 20090201
  2. NIACIN [Suspect]
     Indication: HYPERLIPIDAEMIA
     Dosage: 2 GM AT BEDTIME PO
     Route: 048
     Dates: start: 20040517, end: 20090201

REACTIONS (1)
  - RHABDOMYOLYSIS [None]
